FAERS Safety Report 9789696 (Version 1)
Quarter: 2013Q4

REPORT INFORMATION
  Report Type: Spontaneous
  Country: US (occurrence: US)
  Receive Date: 20131231
  Receipt Date: 20131231
  Transmission Date: 20140711
  Serious: No
  Sender: FDA-Public Use
  Company Number: US-BAYER-2013-159304

PATIENT
  Sex: 0

DRUGS (1)
  1. NEXAVAR [Suspect]
     Dosage: UNK
     Route: 048
     Dates: start: 201311

REACTIONS (1)
  - Rash generalised [None]
